FAERS Safety Report 5155294-4 (Version None)
Quarter: 2006Q4

REPORT INFORMATION
  Report Type: 
  Country: None (occurrence: None)
  Receive Date: 20061121
  Receipt Date: 20061030
  Transmission Date: 20070319
  Serious: Yes (Hospitalization)
  Sender: FDA-Public Use
  Company Number: AU-ELI_LILLY_AND_COMPANY-AU200611001243

PATIENT
  Age: 59 Year
  Sex: Male

DRUGS (4)
  1. GEMCITABINE HCL [Suspect]
     Indication: NON-HODGKIN'S LYMPHOMA RECURRENT
     Dosage: 1760 MG, UNK
     Dates: start: 20061026
  2. VINORELBINE [Suspect]
     Indication: NON-HODGKIN'S LYMPHOMA RECURRENT
     Dates: start: 20061026
  3. *RITUXIMAB [Suspect]
     Indication: NON-HODGKIN'S LYMPHOMA RECURRENT
     Dosage: 660 MG, UNK
     Dates: start: 20061026
  4. NEUPOGEN [Suspect]
     Indication: NON-HODGKIN'S LYMPHOMA RECURRENT
     Dosage: 6 MG, OTHER
     Route: 058
     Dates: start: 20061103

REACTIONS (3)
  - ABDOMINAL PAIN [None]
  - DIARRHOEA [None]
  - NEUTROPENIC COLITIS [None]
